FAERS Safety Report 14999780 (Version 1)
Quarter: 2018Q2

REPORT INFORMATION
  Report Type: Spontaneous
  Country: US (occurrence: US)
  Receive Date: 20180523
  Receipt Date: 20180523
  Transmission Date: 20180711
  Serious: Yes (Hospitalization)
  Sender: FDA-Public Use
  Company Number: None

PATIENT
  Age: 63 Year
  Sex: Female
  Weight: 74.84 kg

DRUGS (1)
  1. TACROLIMUS. [Suspect]
     Active Substance: TACROLIMUS
     Indication: BONE MARROW TRANSPLANT
     Route: 048
     Dates: start: 20180201, end: 20180414

REACTIONS (4)
  - Headache [None]
  - Seizure [None]
  - Posterior reversible encephalopathy syndrome [None]
  - Vomiting [None]

NARRATIVE: CASE EVENT DATE: 20180407
